FAERS Safety Report 4621491-7 (Version None)
Quarter: 2005Q1

REPORT INFORMATION
  Report Type: 
  Country: None (occurrence: None)
  Receive Date: 20050328
  Receipt Date: 20031209
  Transmission Date: 20050727
  Serious: Yes (Hospitalization)
  Sender: FDA-Public Use
  Company Number: 9645

PATIENT
  Age: 58 Year
  Sex: Female

DRUGS (2)
  1. METHOTREXATE [Suspect]
     Indication: RHEUMATOID ARTHRITIS
     Dosage: 10 MG WEEKLY IM
     Route: 030
     Dates: start: 19911001, end: 19960601
  2. SULFASALAZINE [Concomitant]

REACTIONS (9)
  - ANAEMIA [None]
  - CORNEAL ULCER [None]
  - HEPATITIS [None]
  - INFECTION [None]
  - LYMPHOPENIA [None]
  - NEPHRITIS [None]
  - PANCREATITIS [None]
  - PNEUMONIA [None]
  - VARICELLA [None]
